FAERS Safety Report 21196079 (Version 1)
Quarter: 2022Q3

REPORT INFORMATION
  Report Type: Spontaneous
  Country: IN (occurrence: IN)
  Receive Date: 20220810
  Receipt Date: 20220810
  Transmission Date: 20221027
  Serious: Yes (Other)
  Sender: FDA-Public Use
  Company Number: IN-PFIZER INC-202200521113

PATIENT
  Age: 63 Year
  Sex: Female

DRUGS (5)
  1. PALBOCICLIB [Suspect]
     Active Substance: PALBOCICLIB
     Indication: Breast cancer stage II
     Dosage: 125 MG
     Route: 048
     Dates: start: 202108
  2. PALBOCICLIB [Suspect]
     Active Substance: PALBOCICLIB
     Dosage: 125 MG, CYCLIC (D1-D21 ON, 7 DAYS OFF)
  3. LETROZOLE [Concomitant]
     Active Substance: LETROZOLE
     Dosage: 2.5 MG, 1X/DAY
  4. VITAMIN D3 [Concomitant]
     Active Substance: CHOLECALCIFEROL
     Dosage: UNK, MONTHLY (60000 IV ONCE MONTH)
     Route: 042
  5. ZOLEDRONIC ACID [Concomitant]
     Active Substance: ZOLEDRONIC ACID
     Dosage: 4 MG (4MG IN 100ML NS IV OVER 30 MINS)
     Route: 042

REACTIONS (13)
  - Diabetes mellitus [Unknown]
  - Blood glucose abnormal [Unknown]
  - Limb asymmetry [Unknown]
  - Depression [Unknown]
  - Swelling [Unknown]
  - Lymphoedema [Unknown]
  - Oedema [Unknown]
  - Hypometabolism [Unknown]
  - Haemoglobin decreased [Unknown]
  - Platelet count decreased [Unknown]
  - White blood cell count decreased [Unknown]
  - Neutrophil count decreased [Unknown]
  - Blood glucose increased [Unknown]

NARRATIVE: CASE EVENT DATE: 20220302
